FAERS Safety Report 6760488-8 (Version None)
Quarter: 2010Q2

REPORT INFORMATION
  Report Type: 
  Country: None (occurrence: None)
  Receive Date: 20100602
  Receipt Date: 20100401
  Transmission Date: 20101027
  Serious: Yes (Hospitalization)
  Sender: FDA-Public Use
  Company Number: 229593USA

PATIENT
  Age: 45 Year
  Sex: Male

DRUGS (3)
  1. OXALIPLATIN [Suspect]
     Indication: COLON CANCER
     Dosage: (170 MG,1 IN 2 WK),INTRAVENOUS (NOT OTHERWISE SPECIFIED)
     Route: 042
     Dates: start: 20100315, end: 20100315
  2. FOLINIC ACID [Suspect]
     Indication: COLON CANCER
     Dosage: (400 MG,1 IN  2 WK),INTRAVENOUS (NOT OTHERWISE SPECIFIED)
     Route: 042
     Dates: end: 20100315
  3. FLUOROURACIL [Suspect]
     Indication: COLON CANCER
     Dosage: 800MG BOLUS FOLLOWED BY 1200MG INFUSION,INTRAVENOUS (NOT OTHERWISE SPECIFIED)
     Route: 042
     Dates: end: 20100315

REACTIONS (4)
  - CHILLS [None]
  - NAUSEA [None]
  - PYREXIA [None]
  - VOMITING [None]
